FAERS Safety Report 6321904-9 (Version None)
Quarter: 2009Q3

REPORT INFORMATION
  Report Type: 
  Country: None (occurrence: None)
  Receive Date: 20090824
  Receipt Date: 20090817
  Transmission Date: 20100115
  Serious: Yes (Hospitalization)
  Sender: FDA-Public Use
  Company Number: US-ASTRAZENECA-2009SE08444

PATIENT
  Age: 66 Year
  Sex: Female
  Weight: 86.8 kg

DRUGS (6)
  1. FULVESTRANT [Suspect]
     Indication: BREAST CANCER
     Route: 030
     Dates: start: 20080214
  2. ASPIRIN [Concomitant]
     Route: 048
  3. ATIVAN [Concomitant]
     Route: 048
  4. CRESTOR [Concomitant]
     Route: 048
  5. HYDROCHLOROTHIAZIDE [Concomitant]
     Route: 048
  6. OTC ANTIHISTAMINE [Concomitant]
     Route: 048

REACTIONS (1)
  - ENDOMETRIAL CANCER [None]
